FAERS Safety Report 19376555 (Version 2)
Quarter: 2021Q3

REPORT INFORMATION
  Report Type: Spontaneous
  Country: US (occurrence: US)
  Receive Date: 20210604
  Receipt Date: 20210730
  Transmission Date: 20211014
  Serious: Yes (Hospitalization, Other)
  Sender: FDA-Public Use
  Company Number: US-ASTRAZENECA-2021A484587

PATIENT
  Age: 875 Month
  Sex: Female
  Weight: 59 kg

DRUGS (15)
  1. ASPIRIN. [Concomitant]
     Active Substance: ASPIRIN
     Dosage: UNKNOWN
     Route: 065
  2. CHLORDIAZEPOXIDE HYDROCHLORIDE/HYOSCINE BUTYLBROMIDE/DICYCLOVERINE HYDROCHLORIDE/CHLOROPHYLLIN COPPE [Concomitant]
     Dosage: UNKNOWN
     Route: 065
  3. BRILINTA [Suspect]
     Active Substance: TICAGRELOR
     Indication: CARDIAC DISORDER
     Dosage: UNKNOWN, DAILY
     Route: 048
     Dates: start: 2020, end: 202004
  4. LEVOXYL [Concomitant]
     Active Substance: LEVOTHYROXINE SODIUM
     Dosage: UNKNOWN
     Route: 065
  5. POTASSIUM [Concomitant]
     Active Substance: POTASSIUM
     Dosage: UNKNOWN
     Route: 065
  6. PLAVIX [Concomitant]
     Active Substance: CLOPIDOGREL BISULFATE
     Dosage: UNKNOWN
     Route: 065
  7. COREG [Concomitant]
     Active Substance: CARVEDILOL
     Dosage: UNKNOWN
     Route: 065
  8. CARAFATE [Concomitant]
     Active Substance: SUCRALFATE
     Dosage: UNKNOWN
     Route: 065
  9. LASIX [Concomitant]
     Active Substance: FUROSEMIDE
     Dosage: UNKNOWN
     Route: 065
  10. PHENERGAN [Concomitant]
     Active Substance: PROMETHAZINE HYDROCHLORIDE
     Dosage: UNKNOWN
     Route: 065
  11. MULTIPLE VITAMIN [Concomitant]
     Active Substance: VITAMINS
     Dosage: UNKNOWN
     Route: 065
  12. METFORMIN [Concomitant]
     Active Substance: METFORMIN HYDROCHLORIDE
     Dosage: UNKNOWN
     Route: 065
  13. ENTRESTO [Concomitant]
     Active Substance: SACUBITRIL\VALSARTAN
     Dosage: UNKNOWN
     Route: 065
  14. ENTRESTO [Concomitant]
     Active Substance: SACUBITRIL\VALSARTAN
     Dosage: UNKNOWN
     Route: 065
  15. MELATONIN [Concomitant]
     Active Substance: MELATONIN
     Dosage: UNKNOWN
     Route: 065

REACTIONS (24)
  - Coronary artery disease [Unknown]
  - Bradycardia [Unknown]
  - Hydrocephalus [Recovered/Resolved]
  - Peripheral vascular disorder [Unknown]
  - Tachycardia [Unknown]
  - NYHA classification [Unknown]
  - Osteoarthritis [Unknown]
  - Fatigue [Unknown]
  - Cerebral haemorrhage [Recovered/Resolved]
  - Subclavian artery stenosis [Unknown]
  - Gastrooesophageal reflux disease [Unknown]
  - Hypothyroidism [Unknown]
  - Palpitations [Unknown]
  - Thrombosis [Recovered/Resolved]
  - Fibromyalgia [Unknown]
  - Ischaemic cardiomyopathy [Unknown]
  - Raynaud^s phenomenon [Unknown]
  - Chest pain [Unknown]
  - Cardiac failure congestive [Unknown]
  - Mitral valve incompetence [Unknown]
  - Intermittent claudication [Unknown]
  - Hyperlipidaemia [Unknown]
  - Hypertension [Unknown]
  - Dyspnoea [Unknown]

NARRATIVE: CASE EVENT DATE: 202004
